FAERS Safety Report 6304072-9 (Version None)
Quarter: 2009Q3

REPORT INFORMATION
  Report Type: 
  Country: None (occurrence: None)
  Receive Date: 20090806
  Receipt Date: 20090724
  Transmission Date: 20100115
  Serious: Yes (Death, Hospitalization)
  Sender: FDA-Public Use
  Company Number: 2009AL004039

PATIENT
  Age: 63 Year
  Sex: Male

DRUGS (24)
  1. DIGOXIN [Suspect]
     Dosage: 0.25MG, DAILY, PO
     Route: 048
  2. HUMULIN R [Concomitant]
  3. LIPITOR [Concomitant]
  4. KLONOPIN [Concomitant]
  5. RISPERDAL [Concomitant]
  6. PAXIL [Concomitant]
  7. ASPIRIN [Concomitant]
  8. LISINOPRIL [Concomitant]
  9. PREDNISONE [Concomitant]
  10. NORVASC [Concomitant]
  11. BACTRIM [Concomitant]
  12. DARVOCET [Concomitant]
  13. BUMEX [Concomitant]
  14. COUMADIN [Concomitant]
  15. PROCRIT [Concomitant]
  16. POTASSIUM CHLORIDE [Concomitant]
  17. CALCIUM [Concomitant]
  18. ALBUTEROL [Concomitant]
  19. ALLOPURINOL [Concomitant]
  20. AMIODARONE HCL [Concomitant]
  21. GENGRAF [Concomitant]
  22. CELLCEPT [Concomitant]
  23. COREG [Concomitant]
  24. REPLIVA [Concomitant]

REACTIONS (11)
  - ASTHENIA [None]
  - CARDIAC FAILURE CONGESTIVE [None]
  - FLANK PAIN [None]
  - GOUTY ARTHRITIS [None]
  - NAUSEA [None]
  - PANCYTOPENIA [None]
  - PNEUMONIA [None]
  - PRURITUS [None]
  - RENAL IMPAIRMENT [None]
  - VASCULAR GRAFT [None]
  - VOMITING [None]
